FAERS Safety Report 7179784-8 (Version None)
Quarter: 2010Q4

REPORT INFORMATION
  Report Type: 
  Country: None (occurrence: None)
  Receive Date: 20101221
  Receipt Date: 20101213
  Transmission Date: 20110411
  Serious: Yes (Death, Hospitalization, Other)
  Sender: FDA-Public Use
  Company Number: US-AMGEN-USASP2010003913

PATIENT

DRUGS (5)
  1. PROCRIT [Suspect]
     Indication: APLASTIC ANAEMIA
     Dosage: 40000 IU, PRN
     Route: 058
     Dates: start: 20010101, end: 20070501
  2. SYNTHROID [Concomitant]
     Dosage: 200 MG, QD
     Route: 048
     Dates: start: 20010101
  3. DIOVAN [Concomitant]
     Dosage: UNK UNK, QD
     Route: 048
  4. NORVASC [Concomitant]
     Dosage: UNK UNK, QD
     Route: 048
  5. CREON [Concomitant]
     Dosage: 20000 IU, TID
     Route: 048
     Dates: start: 19890101

REACTIONS (7)
  - CARDIAC DISORDER [None]
  - CARDIAC FAILURE CONGESTIVE [None]
  - GALLBLADDER OPERATION [None]
  - MYOCARDIAL INFARCTION [None]
  - POST PROCEDURAL COMPLICATION [None]
  - SEPSIS [None]
  - THROMBOSIS [None]
